FAERS Safety Report 5596221-5 (Version None)
Quarter: 2007Q4

REPORT INFORMATION
  Report Type: 
  Country: None (occurrence: None)
  Receive Date: 20071218
  Receipt Date: 20070418
  Transmission Date: 20080405
  Serious: Yes (Other)
  Sender: FDA-Public Use
  Company Number: 2006124716

PATIENT
  Age: 41 Year
  Sex: Female

DRUGS (2)
  1. BEXTRA [Suspect]
     Indication: ARTHRITIS
     Dosage: 10 MG (10 MG,1 IN 1 D)
     Dates: start: 20021213, end: 20041013
  2. VIOXX [Suspect]
     Dates: start: 20020101, end: 20031024

REACTIONS (2)
  - DEPRESSION [None]
  - MYOCARDIAL INFARCTION [None]
